FAERS Safety Report 6858515-2 (Version None)
Quarter: 2010Q3

REPORT INFORMATION
  Report Type: 
  Country: None (occurrence: None)
  Receive Date: 20100719
  Receipt Date: 20080212
  Transmission Date: 20110219
  Serious: No
  Sender: FDA-Public Use
  Company Number: US-PFIZER INC-2008013782

PATIENT
  Sex: Female
  Weight: 77.3 kg

DRUGS (4)
  1. CHANTIX [Suspect]
     Indication: SMOKING CESSATION THERAPY
     Route: 048
     Dates: start: 20071201, end: 20080101
  2. ESTROGENS ESTERIFIED [Concomitant]
  3. SYNTHROID [Concomitant]
  4. NEXIUM [Concomitant]

REACTIONS (2)
  - DYSGEUSIA [None]
  - NIGHTMARE [None]
